FAERS Safety Report 9616787 (Version 1)
Quarter: 2013Q4

REPORT INFORMATION
  Report Type: Spontaneous
  Country: GB (occurrence: GB)
  Receive Date: 20131011
  Receipt Date: 20131011
  Transmission Date: 20140711
  Serious: Yes (Other)
  Sender: FDA-Public Use
  Company Number: GB-WATSON-2013-18188

PATIENT
  Age: 52 Year
  Sex: Male

DRUGS (5)
  1. FLUOXETINE (UNKNOWN) [Suspect]
     Indication: DEPRESSION
     Dosage: 20 MG, UNK
     Route: 048
     Dates: start: 201307, end: 20130905
  2. MIRTAZAPINE [Concomitant]
     Indication: DEPRESSION
  3. LANSOPRAZOLE [Concomitant]
     Indication: DYSPEPSIA
  4. LAXIDO [Concomitant]
  5. LORAZEPAM [Concomitant]

REACTIONS (2)
  - Haemorrhagic stroke [Recovered/Resolved]
  - Haematoma [Recovered/Resolved]
